FAERS Safety Report 17412358 (Version 2)
Quarter: 2021Q2

REPORT INFORMATION
  Report Type: Report from Study
  Country: GB (occurrence: GB)
  Receive Date: 20200213
  Receipt Date: 20210406
  Transmission Date: 20210716
  Serious: Yes (Hospitalization)
  Sender: FDA-Public Use
  Company Number: GB-SAMSUNG BIOEPIS-SB-2020-04476

PATIENT
  Sex: Female

DRUGS (1)
  1. IMRALDI [Suspect]
     Active Substance: ADALIMUMAB
     Indication: CROHN^S DISEASE
     Route: 058

REACTIONS (8)
  - Immunosuppression [Unknown]
  - Gastrointestinal infection [Unknown]
  - Needle issue [Unknown]
  - Diarrhoea haemorrhagic [Unknown]
  - C-reactive protein increased [Unknown]
  - Condition aggravated [Unknown]
  - Product substitution issue [Unknown]
  - Illness [Unknown]
